FAERS Safety Report 6416913-5 (Version None)
Quarter: 2009Q4

REPORT INFORMATION
  Report Type: 
  Country: None (occurrence: None)
  Receive Date: 20091023
  Receipt Date: 20091008
  Transmission Date: 20100525
  Serious: Yes (Other)
  Sender: FDA-Public Use
  Company Number: A-CH2009-27944

PATIENT
  Age: 25 Year
  Sex: Female
  Weight: 58 kg

DRUGS (4)
  1. TRACLEER [Suspect]
     Indication: PULMONARY ARTERIAL HYPERTENSION
     Dosage: ORAL
     Route: 048
     Dates: start: 20070301, end: 20071001
  2. SITAXENTAN (SITAXENTAN) [Suspect]
     Dates: start: 20080101, end: 20080501
  3. DIGOXIN [Concomitant]
  4. ASPIRIN [Concomitant]

REACTIONS (7)
  - ABDOMINAL DISCOMFORT [None]
  - ALANINE AMINOTRANSFERASE INCREASED [None]
  - ASPARTATE AMINOTRANSFERASE INCREASED [None]
  - BLOOD BILIRUBIN INCREASED [None]
  - HEPATITIS [None]
  - HEPATOTOXICITY [None]
  - LIVER INJURY [None]
